FAERS Safety Report 9636581 (Version 2)
Quarter: 2013Q4

REPORT INFORMATION
  Report Type: Spontaneous
  Country: CH (occurrence: CH)
  Receive Date: 20131021
  Receipt Date: 20131021
  Transmission Date: 20140711
  Serious: Yes (Other)
  Sender: FDA-Public Use
  Company Number: CH-GILEAD-2013-0084155

PATIENT
  Sex: Female

DRUGS (4)
  1. VIREAD [Suspect]
     Indication: HIV INFECTION
     Dosage: UNK
     Dates: start: 2009
  2. EMTRIVA [Suspect]
     Indication: HIV INFECTION
     Dosage: UNK
     Dates: start: 2009
  3. EFAVIRENZ [Concomitant]
     Indication: HIV INFECTION
     Dosage: UNK
     Dates: start: 2009
  4. ATAZANAVIR W/RITONAVIR [Concomitant]
     Indication: HIV INFECTION
     Dosage: UNK
     Dates: start: 2009

REACTIONS (1)
  - Renal failure [Unknown]
